FAERS Safety Report 17970546 (Version 5)
Quarter: 2021Q1

REPORT INFORMATION
  Report Type: Spontaneous
  Country: US (occurrence: US)
  Receive Date: 20200701
  Receipt Date: 20210324
  Transmission Date: 20210419
  Serious: Yes (Hospitalization, Other)
  Sender: FDA-Public Use
  Company Number: US-PFIZER INC-2020236924

PATIENT
  Age: 81 Year
  Sex: Female
  Weight: 85.28 kg

DRUGS (2)
  1. XELJANZ XR [Suspect]
     Active Substance: TOFACITINIB CITRATE
     Indication: SPINAL OSTEOARTHRITIS
     Dosage: 11 MG
  2. XELJANZ XR [Suspect]
     Active Substance: TOFACITINIB CITRATE
     Indication: RHEUMATOID ARTHRITIS

REACTIONS (4)
  - Thrombosis [Unknown]
  - Ulcer haemorrhage [Unknown]
  - Malaise [Unknown]
  - Spinal cord compression [Unknown]

NARRATIVE: CASE EVENT DATE: 2020
